FAERS Safety Report 13101490 (Version 2)
Quarter: 2017Q1

REPORT INFORMATION
  Report Type: Spontaneous
  Country: FR (occurrence: FR)
  Receive Date: 20170110
  Receipt Date: 20170203
  Transmission Date: 20170428
  Serious: Yes (Hospitalization)
  Sender: FDA-Public Use
  Company Number: FR-PFIZER INC-2017003358

PATIENT
  Age: 53 Year
  Sex: Female

DRUGS (25)
  1. SUFENTANIL [Suspect]
     Active Substance: SUFENTANIL
     Dosage: UNK
     Route: 042
     Dates: start: 20160906, end: 20160916
  2. IMOVANE [Concomitant]
     Active Substance: ZOPICLONE
     Dosage: 7.5 MG, 1 OR 2 TABLETS AT BEDTIME
  3. DIPRIVAN [Concomitant]
     Active Substance: PROPOFOL
     Dosage: UNK
     Dates: start: 20160913, end: 20160916
  4. TAZOCILLINE [Suspect]
     Active Substance: PIPERACILLIN SODIUM\TAZOBACTAM SODIUM
     Dosage: UNK
     Route: 042
     Dates: start: 20160913, end: 20160923
  5. LAMICTAL [Suspect]
     Active Substance: LAMOTRIGINE
     Indication: EPILEPSY
     Dosage: 200 MG, 2X/DAY (IN THE MORNING AND THE EVENING)
     Route: 048
     Dates: start: 20160906, end: 20160920
  6. INSULIN [Suspect]
     Active Substance: INSULIN NOS
     Dosage: UNK
     Route: 058
     Dates: start: 20160902, end: 20160902
  7. INSULIN [Suspect]
     Active Substance: INSULIN NOS
     Dosage: UNK
     Route: 058
     Dates: start: 20160913, end: 20160916
  8. PIPERACILLIN [Suspect]
     Active Substance: PIPERACILLIN
     Dosage: UNK
     Dates: start: 20160923, end: 20160927
  9. TIAPRIDAL [Suspect]
     Active Substance: TIAPRIDE HYDROCHLORIDE
     Dosage: UNK
     Dates: start: 20160914, end: 20160915
  10. RIVOTRIL [Concomitant]
     Active Substance: CLONAZEPAM
     Dosage: 2 MG, 1X/DAY (IN THE EVENING)
  11. AMLOR [Suspect]
     Active Substance: AMLODIPINE BESYLATE
     Dosage: UNK
     Route: 048
     Dates: start: 20160920, end: 20160927
  12. CALCIPARINE [Suspect]
     Active Substance: HEPARIN CALCIUM
     Dosage: UNK
     Dates: start: 20160906, end: 20160926
  13. CISATRACURIUM. [Suspect]
     Active Substance: CISATRACURIUM
     Dosage: UNK
     Dates: start: 20160913, end: 20160914
  14. EFFEXOR [Concomitant]
     Active Substance: VENLAFAXINE HYDROCHLORIDE
     Dosage: 75 MG, 2X/DAY (IN THE MORNING AND THE EVENING)
  15. FUROSEMIDE. [Suspect]
     Active Substance: FUROSEMIDE
     Dosage: UNK
     Route: 042
     Dates: start: 20160925, end: 20160930
  16. SUFENTANIL [Suspect]
     Active Substance: SUFENTANIL
     Dosage: UNK
     Route: 042
     Dates: start: 20160901, end: 20160901
  17. FORTUM /00559701/ [Suspect]
     Active Substance: CEFTAZIDIME
     Dosage: UNK
     Route: 042
     Dates: start: 20160906, end: 20160910
  18. KEPPRA [Concomitant]
     Active Substance: LEVETIRACETAM
     Indication: PROPHYLAXIS
     Dosage: UNK
  19. KEPPRA [Concomitant]
     Active Substance: LEVETIRACETAM
     Dosage: 750 MG, 2X/DAY
  20. FUROSEMIDE. [Suspect]
     Active Substance: FUROSEMIDE
     Dosage: UNK
     Route: 042
     Dates: start: 20160906, end: 20160909
  21. XANAX [Concomitant]
     Active Substance: ALPRAZOLAM
     Dosage: 0.5 MG, 2 TO 3 TIMES PER DAY
  22. INSULIN [Suspect]
     Active Substance: INSULIN NOS
     Dosage: UNK
     Route: 058
     Dates: start: 20160907, end: 20160909
  23. FUROSEMIDE. [Suspect]
     Active Substance: FUROSEMIDE
     Dosage: UNK
     Route: 042
     Dates: start: 20160914, end: 20160914
  24. TRACRIUM [Suspect]
     Active Substance: ATRACURIUM BESYLATE
     Dosage: UNK
     Route: 042
     Dates: start: 20160906, end: 20160912
  25. DIPRIVAN [Concomitant]
     Active Substance: PROPOFOL
     Dosage: UNK
     Dates: start: 20160908

REACTIONS (1)
  - Eosinophilia [Recovered/Resolved]

NARRATIVE: CASE EVENT DATE: 20160910
